FAERS Safety Report 8966783 (Version 1)
Quarter: 2012Q4

REPORT INFORMATION
  Report Type: Report from Study
  Country: US (occurrence: US)
  Receive Date: 20121217
  Receipt Date: 20121217
  Transmission Date: 20130627
  Serious: Yes (Death)
  Sender: FDA-Public Use
  Company Number: US-JNJFOC-20121203360

PATIENT
  Age: 78 Year
  Sex: Male

DRUGS (1)
  1. REMICADE [Suspect]
     Indication: PRODUCT USED FOR UNKNOWN INDICATION
     Route: 042

REACTIONS (5)
  - Death [Fatal]
  - Sinusitis fungal [Unknown]
  - Weight decreased [Unknown]
  - Eating disorder [Unknown]
  - Headache [Unknown]
